FAERS Safety Report 18070406 (Version 1)
Quarter: 2020Q3

REPORT INFORMATION
  Report Type: Spontaneous
  Country: US (occurrence: US)
  Receive Date: 20200727
  Receipt Date: 20200727
  Transmission Date: 20201103
  Serious: No
  Sender: FDA-Public Use
  Company Number: US-ALKEM LABORATORIES LIMITED-US-ALKEM-2020-00208

PATIENT
  Sex: Female

DRUGS (1)
  1. MARINOL [Suspect]
     Active Substance: DRONABINOL
     Indication: APPETITE DISORDER
     Dosage: 2.5 MILLIGRAM
     Route: 048

REACTIONS (1)
  - Product prescribing error [Unknown]
